FAERS Safety Report 4982966-4 (Version None)
Quarter: 2006Q2

REPORT INFORMATION
  Report Type: 
  Country: None (occurrence: None)
  Receive Date: 20060426
  Receipt Date: 20060413
  Transmission Date: 20061013
  Serious: Yes (Hospitalization)
  Sender: FDA-Public Use
  Company Number: BE-SANOFI-SYNTHELABO-F01200601035

PATIENT
  Sex: Female
  Weight: 89 kg

DRUGS (3)
  1. OXALIPLATIN [Suspect]
     Indication: DIFFUSE LARGE B-CELL LYMPHOMA
     Dosage: DAY 2
     Route: 041
     Dates: start: 20060313, end: 20060313
  2. GEMCITABINE [Suspect]
     Dosage: DAY 2
     Route: 041
     Dates: start: 20060313, end: 20060313
  3. RITUXIMAB [Suspect]
     Dosage: DAY 1
     Route: 041
     Dates: start: 20060312, end: 20060312

REACTIONS (2)
  - CHOLELITHIASIS [None]
  - PERFORMANCE STATUS DECREASED [None]
